FAERS Safety Report 12780770 (Version 1)
Quarter: 2016Q3

REPORT INFORMATION
  Report Type: Spontaneous
  Country: CH (occurrence: CH)
  Receive Date: 20160926
  Receipt Date: 20160926
  Transmission Date: 20161109
  Serious: Yes (Other)
  Sender: FDA-Public Use
  Company Number: CH-TEVA-693901ISR

PATIENT
  Age: 0 Year
  Sex: Male
  Weight: 2.73 kg

DRUGS (3)
  1. YELLOW FEVER VACCINE NOS [Suspect]
     Active Substance: YELLOW FEVER VIRUS STRAIN 17D-204 LIVE ANTIGEN
     Indication: MALARIA PROPHYLAXIS
     Dosage: UNSPECIFIED STRENGTH
     Route: 064
     Dates: start: 20150911, end: 20150911
  2. MEPHAQUIN [Suspect]
     Active Substance: MEFLOQUINE
     Indication: MALARIA PROPHYLAXIS
     Route: 064
     Dates: start: 20150923, end: 201511
  3. RABIES VACCINE NOS [Suspect]
     Active Substance: RABIES VACCINE
     Indication: MALARIA PROPHYLAXIS
     Dosage: UNSPECIFIED STRENGTH
     Route: 064
     Dates: start: 20150911, end: 20150911

REACTIONS (3)
  - Foetal growth restriction [Unknown]
  - Exposure during pregnancy [Unknown]
  - Caesarean section [None]

NARRATIVE: CASE EVENT DATE: 2015
